FAERS Safety Report 24266563 (Version 2)
Quarter: 2024Q4

REPORT INFORMATION
  Report Type: Report from Study
  Country: US (occurrence: US)
  Receive Date: 20240830
  Receipt Date: 20241001
  Transmission Date: 20250115
  Serious: Yes (Other)
  Sender: ABBVIE
  Company Number: US-ABBVIE-5898890

PATIENT
  Sex: Female

DRUGS (1)
  1. RINVOQ [Suspect]
     Active Substance: UPADACITINIB
     Indication: Rheumatoid arthritis
     Dosage: LAST ADMIN DATE 2024
     Route: 048
     Dates: start: 20240624

REACTIONS (14)
  - Knee arthroplasty [Unknown]
  - Psoriasis [Unknown]
  - Pruritus [Not Recovered/Not Resolved]
  - Gastrointestinal disorder [Unknown]
  - Peripheral swelling [Unknown]
  - Fluid retention [Unknown]
  - Scab [Not Recovered/Not Resolved]
  - Psoriatic arthropathy [Unknown]
  - Arthralgia [Unknown]
  - Pain [Unknown]
  - Joint stiffness [Unknown]
  - Impaired gastric emptying [Unknown]
  - Drug ineffective [Unknown]
  - Dermatitis [Not Recovered/Not Resolved]

NARRATIVE: CASE EVENT DATE: 20240101
